FAERS Safety Report 5052822-4 (Version None)
Quarter: 2006Q3

REPORT INFORMATION
  Report Type: 
  Country: None (occurrence: None)
  Receive Date: 20060713
  Receipt Date: 20060713
  Transmission Date: 20061208
  Serious: No
  Sender: FDA-Public Use
  Company Number: None

PATIENT
  Sex: Female
  Weight: 57.6068 kg

DRUGS (2)
  1. EFFEXOR [Suspect]
     Indication: DEPRESSION
     Dosage: 1 DAY PO  6-8 MONTHS
     Route: 048
     Dates: start: 20060101, end: 20060701
  2. EFFEXOR [Suspect]
     Indication: PAIN
     Dosage: 1 DAY PO  6-8 MONTHS
     Route: 048
     Dates: start: 20060101, end: 20060701

REACTIONS (10)
  - CRYING [None]
  - DISTURBANCE IN ATTENTION [None]
  - DIZZINESS [None]
  - DRUG WITHDRAWAL SYNDROME [None]
  - EAR DISCOMFORT [None]
  - FEELING ABNORMAL [None]
  - IMPAIRED WORK ABILITY [None]
  - MEMORY IMPAIRMENT [None]
  - PARAESTHESIA [None]
  - VOMITING [None]
